FAERS Safety Report 7491590-3 (Version None)
Quarter: 2011Q2

REPORT INFORMATION
  Report Type: 
  Country: None (occurrence: None)
  Receive Date: 20110519
  Receipt Date: 20110511
  Transmission Date: 20111010
  Serious: Yes (Death)
  Sender: FDA-Public Use
  Company Number: NO-NOVOPROD-328040

PATIENT
  Sex: Female

DRUGS (14)
  1. ZYRTEC [Concomitant]
     Route: 048
  2. CALCIGRAN FORTE [Concomitant]
     Route: 048
  3. NORVASC [Suspect]
     Indication: HYPERTENSION
     Route: 048
     Dates: start: 20110315, end: 20110403
  4. METOPROLOL TARTRATE [Concomitant]
     Route: 048
  5. PANTOPRAZOLE [Concomitant]
     Route: 048
  6. TRIOBE                             /01079901/ [Concomitant]
     Route: 048
  7. SIMVASTATIN [Concomitant]
     Route: 048
  8. PARACET [Concomitant]
     Route: 048
  9. HALDOL [Concomitant]
  10. NOVOLOG [Suspect]
     Indication: HYPERGLYCAEMIA
     Dosage: 6-8 IE PER DAY
     Route: 058
     Dates: start: 20110307, end: 20110311
  11. PREDNISOLON                        /00016201/ [Concomitant]
     Route: 048
     Dates: start: 20110301
  12. HUMALOG [Concomitant]
     Route: 058
  13. BUMETANIDE [Concomitant]
     Route: 048
  14. ZOLPIDEM TARTRATE [Concomitant]
     Route: 048

REACTIONS (1)
  - TOXIC EPIDERMAL NECROLYSIS [None]
